FAERS Safety Report 9132686 (Version 2)
Quarter: 2013Q2

REPORT INFORMATION
  Report Type: Spontaneous
  Country: DE (occurrence: DE)
  Receive Date: 20130301
  Receipt Date: 20130429
  Transmission Date: 20140414
  Serious: Yes (Life-Threatening, Hospitalization)
  Sender: FDA-Public Use
  Company Number: DE-ABBOTT-13X-062-1056947-00

PATIENT
  Age: 53 Year
  Sex: Male

DRUGS (5)
  1. ERGENYL [Suspect]
     Indication: EPILEPSY
     Route: 048
     Dates: end: 20130222
  2. TOPAMAX [Concomitant]
     Indication: PRODUCT USED FOR UNKNOWN INDICATION
  3. SEROQUEL [Concomitant]
     Indication: PRODUCT USED FOR UNKNOWN INDICATION
  4. DIAZEPAM [Concomitant]
     Indication: PRODUCT USED FOR UNKNOWN INDICATION
  5. CLEXANE [Concomitant]
     Indication: PRODUCT USED FOR UNKNOWN INDICATION

REACTIONS (3)
  - Encephalitis [Recovered/Resolved]
  - Ammonia increased [Unknown]
  - Hepatic enzyme increased [Unknown]
